FAERS Safety Report 7440547-7 (Version None)
Quarter: 2011Q2

REPORT INFORMATION
  Report Type: 
  Country: None (occurrence: None)
  Receive Date: 20110427
  Receipt Date: 20110128
  Transmission Date: 20111010
  Serious: Yes (Other)
  Sender: FDA-Public Use
  Company Number: A0913002A

PATIENT
  Sex: Female

DRUGS (3)
  1. IMODIUM [Concomitant]
     Dosage: 2MG SEE DOSAGE TEXT
     Route: 065
  2. TYKERB [Suspect]
     Dosage: 1250MG PER DAY
     Route: 048
     Dates: start: 20100921, end: 20110420
  3. XELODA [Concomitant]
     Dosage: 1000MG TWICE PER DAY
     Route: 065

REACTIONS (3)
  - GASTRIC DISORDER [None]
  - DIARRHOEA [None]
  - NEOPLASM MALIGNANT [None]
